FAERS Safety Report 4424444-7 (Version None)
Quarter: 2004Q3

REPORT INFORMATION
  Report Type: 
  Country: None (occurrence: None)
  Receive Date: 20040812
  Receipt Date: 20030624
  Transmission Date: 20050211
  Serious: Yes (Other)
  Sender: FDA-Public Use
  Company Number: FR-BRISTOL-MYERS SQUIBB COMPANY-12309803

PATIENT
  Age: 46 Year
  Sex: Male
  Weight: 75 kg

DRUGS (6)
  1. SUSTIVA [Suspect]
     Indication: HIV INFECTION
     Dosage: INTERRUPTED ON 28-MAY-2003 AND RESTARTED ON 07-JUL-2003.
     Route: 048
     Dates: start: 20000802
  2. VIDEX EC [Suspect]
     Indication: HIV INFECTION
     Route: 048
     Dates: start: 20000802, end: 20030528
  3. EMTRICITABINE [Suspect]
     Indication: HIV INFECTION
     Dosage: INTERRUPTED ON 28-MAY-2003 AND RESTARTED ON 07-JUL-2003.
     Route: 048
     Dates: start: 20000802
  4. VIREAD [Suspect]
     Indication: HIV INFECTION
     Dosage: THERAPY INTERRUPTED 28-MAY-2003, RESTARTED 07-JUL-2003.
     Dates: start: 20000802
  5. REBETOL [Suspect]
     Indication: HEPATITIS C
     Dosage: INTERRUPTED ON 28-MAY-2003 AND RESTARTED ON 22-JUL-2003, ^5 DAILY^.
     Route: 048
     Dates: start: 20030205
  6. PEGINTERFERON ALFA-2B [Suspect]
     Indication: HEPATITIS C
     Dosage: INTERRUPTED ON 28-MAY-2003 AND RESTARTED ON 22-JUL-2003.
     Route: 048
     Dates: start: 20030205

REACTIONS (1)
  - PANCREATITIS [None]
